FAERS Safety Report 15803407 (Version 2)
Quarter: 2019Q1

REPORT INFORMATION
  Report Type: Spontaneous
  Country: DE (occurrence: DE)
  Receive Date: 20190109
  Receipt Date: 20190131
  Transmission Date: 20190417
  Serious: Yes (Death, Other)
  Sender: FDA-Public Use
  Company Number: DE-AMGEN-DEUSP2018176388

PATIENT
  Age: 47 Year
  Sex: Male
  Weight: 73 kg

DRUGS (7)
  1. VORICONAZOL [Concomitant]
     Active Substance: VORICONAZOLE
     Dosage: 200 MG, BID
     Dates: start: 20181130, end: 20181211
  2. CYCLOPHOSPHAMIDE. [Concomitant]
     Active Substance: CYCLOPHOSPHAMIDE
     Dosage: UNK
     Dates: start: 2018
  3. PIPERACILLIN AND TAZOBACTAM [Concomitant]
     Active Substance: PIPERACILLIN SODIUM\TAZOBACTAM SODIUM
     Indication: INFECTION
     Dosage: (4/0) 5 G, TID
     Dates: start: 20181127, end: 20181204
  4. MIRTAZAPIN [Concomitant]
     Active Substance: MIRTAZAPINE
     Indication: SLEEP DISORDER
     Dosage: 15 MG, QD
     Dates: start: 20181119, end: 20181206
  5. BLINCYTO [Suspect]
     Active Substance: BLINATUMOMAB
     Indication: BURKITT^S LYMPHOMA RECURRENT
     Dosage: 9 MCG, QD
     Route: 042
     Dates: start: 20181126, end: 2018
  6. BLINCYTO [Suspect]
     Active Substance: BLINATUMOMAB
     Indication: PRECURSOR B-LYMPHOBLASTIC LYMPHOMA RECURRENT
     Dosage: 28 MCG, QD
     Route: 042
     Dates: start: 20181203, end: 20181206
  7. NIVOLUMAB [Concomitant]
     Active Substance: NIVOLUMAB
     Dosage: UNK
     Dates: end: 201812

REACTIONS (4)
  - Mental impairment [Unknown]
  - Pneumonia [Unknown]
  - B precursor type acute leukaemia [Fatal]
  - Sepsis [Fatal]

NARRATIVE: CASE EVENT DATE: 201812
